FAERS Safety Report 4564456-6 (Version None)
Quarter: 2005Q1

REPORT INFORMATION
  Report Type: 
  Country: None (occurrence: None)
  Receive Date: 20050128
  Receipt Date: 20040818
  Transmission Date: 20050727
  Serious: No
  Sender: FDA-Public Use
  Company Number: US-BRISTOL-MYERS SQUIBB COMPANY-12683975

PATIENT
  Age: 79 Year
  Sex: Female
  Weight: 60 kg

DRUGS (11)
  1. ULTRAVATE [Suspect]
     Indication: PSORIASIS
     Dosage: LOT ALSO REPORTED AS 0869813-02288
     Route: 061
  2. SALICYLIC ACID [Concomitant]
  3. AQUAPHOR [Concomitant]
  4. ZOCOR [Concomitant]
  5. TYLENOL W/ CODEINE NO. 3 [Concomitant]
  6. CARTIA XT [Concomitant]
  7. DIGOXIN [Concomitant]
  8. THEOPHYLLINE HYDRATE [Concomitant]
  9. COUMADIN [Concomitant]
  10. ACIPHEX [Concomitant]
  11. MICARDIS [Concomitant]

REACTIONS (4)
  - DRUG INEFFECTIVE [None]
  - ERYTHEMA [None]
  - PAIN [None]
  - PRURITUS [None]
